FAERS Safety Report 9793271 (Version 2)
Quarter: 2014Q1

REPORT INFORMATION
  Report Type: Report from Study
  Country: US (occurrence: KR)
  Receive Date: 20140102
  Receipt Date: 20140107
  Transmission Date: 20141002
  Serious: Yes (Hospitalization)
  Sender: FDA-Public Use
  Company Number: KR-FRI-1000052520

PATIENT
  Age: 65 Year
  Sex: Male
  Weight: 71 kg

DRUGS (27)
  1. ROFLUMILAST [Suspect]
     Indication: CHRONIC OBSTRUCTIVE PULMONARY DISEASE
     Dosage: 500 MCG
     Route: 048
     Dates: start: 20130704
  2. GELOMYRTOL FORTE [Concomitant]
     Indication: CHRONIC OBSTRUCTIVE PULMONARY DISEASE
     Dosage: 600 MG
     Route: 048
     Dates: start: 20111215
  3. VENTOLIN [Concomitant]
     Dates: start: 20131112
  4. SURFOLASE [Concomitant]
     Dates: start: 20110811
  5. AMINOPHYLLINE [Concomitant]
     Dates: start: 20111129
  6. ASIMA [Concomitant]
     Dates: start: 20130108, end: 20131211
  7. ONBREZ BREEZHALER [Concomitant]
     Dates: start: 20130212
  8. FOSTER HFA [Concomitant]
     Dosage: 100/6
     Dates: start: 20120306
  9. LEVOTUSS [Concomitant]
     Dates: start: 20120612, end: 20130909
  10. ERIUS [Concomitant]
     Dates: start: 20121204
  11. KLARICID XL [Concomitant]
     Dates: start: 20130704, end: 20130731
  12. KLARICID XL [Concomitant]
     Dates: start: 20131010, end: 20131106
  13. SPIRONOLACTONE [Concomitant]
     Dates: start: 20121204, end: 20130205
  14. SYNATURA [Concomitant]
     Dates: start: 20131010
  15. AVAMYS NASAL SPRAY [Concomitant]
     Dates: start: 20131010
  16. SALRON INJECTION [Concomitant]
     Dates: start: 20131212, end: 20131214
  17. RULID [Concomitant]
     Dates: start: 20131212
  18. SINGULAIR [Concomitant]
     Dates: start: 20120306, end: 20131010
  19. LUKAIR [Concomitant]
     Dates: start: 20131010
  20. METHYLON [Concomitant]
     Dates: start: 20120809
  21. COZAAR [Concomitant]
     Dates: start: 20130312
  22. DIGOSIN [Concomitant]
     Dates: start: 20130312
  23. BERASIL [Concomitant]
     Dates: start: 20130312, end: 20130807
  24. ORPHERAXIN INJECTION [Concomitant]
     Dates: start: 20131212
  25. ACTONEL [Concomitant]
     Dates: start: 20131213, end: 20131213
  26. NORSPAN [Concomitant]
     Dates: start: 20131210, end: 20131213
  27. SPIRIVA RESPIMAT [Concomitant]
     Dates: start: 20130212

REACTIONS (5)
  - Dyspnoea [Recovering/Resolving]
  - Back pain [Recovering/Resolving]
  - Thoracic vertebral fracture [Recovering/Resolving]
  - Thoracic vertebral fracture [Recovering/Resolving]
  - Rib fracture [Recovering/Resolving]
